FAERS Safety Report 4383331-3 (Version None)
Quarter: 2004Q2

REPORT INFORMATION
  Report Type: 
  Country: None (occurrence: None)
  Receive Date: 20040618
  Receipt Date: 20040607
  Transmission Date: 20050107
  Serious: Yes (Other)
  Sender: FDA-Public Use
  Company Number: GB-JNJFOC-20040203134

PATIENT
  Age: 39 Year
  Sex: Male
  Weight: 110 kg

DRUGS (2)
  1. RISPERDAL [Suspect]
     Indication: BORDERLINE PERSONALITY DISORDER
     Dosage: 4 MG,  IN 1 DAY, ORAL
     Route: 048
     Dates: start: 20030309, end: 20040317
  2. BIO SELENIUM + ZINC (SELENIUM SULFIDE) [Concomitant]

REACTIONS (3)
  - HEPATIC STEATOSIS [None]
  - HEPATOSPLENOMEGALY [None]
  - THROMBOCYTOPENIA [None]
